FAERS Safety Report 18602058 (Version 1)
Quarter: 2020Q4

REPORT INFORMATION
  Report Type: Spontaneous
  Country: US (occurrence: US)
  Receive Date: 20201210
  Receipt Date: 20201210
  Transmission Date: 20210114
  Serious: No
  Sender: FDA-Public Use
  Company Number: US-VERTEX PHARMACEUTICALS-2020-024234

PATIENT

DRUGS (1)
  1. TRIKAFTA [Suspect]
     Active Substance: ELEXACAFTOR\IVACAFTOR\TEZACAFTOR
     Indication: CYSTIC FIBROSIS
     Dosage: (100 MG ELELXACAFTOR/50 MG TEZACAFTOR/75 MG IVACAFTOR; 150 MG IVACAFTOR) TABS, FREQ UNK
     Route: 048

REACTIONS (1)
  - Liver function test increased [Unknown]
